FAERS Safety Report 7540444-2 (Version None)
Quarter: 2011Q2

REPORT INFORMATION
  Report Type: 
  Country: None (occurrence: None)
  Receive Date: 20110603
  Receipt Date: 20110518
  Transmission Date: 20111010
  Serious: Yes (Life-Threatening, Hospitalization, Other)
  Sender: FDA-Public Use
  Company Number: 2011MA006142

PATIENT
  Age: 57 Year
  Sex: Male

DRUGS (3)
  1. WARFARIN SODIUM [Concomitant]
  2. LIDOCAINE HCL [Suspect]
     Indication: CARDIAC FAILURE
     Dosage: 2 MG/MIN; IV
     Route: 042
     Dates: start: 20090101
  3. AMIODARONE HCL [Concomitant]

REACTIONS (11)
  - SOMNOLENCE [None]
  - MENTAL STATUS CHANGES [None]
  - PULSELESS ELECTRICAL ACTIVITY [None]
  - DISEASE RECURRENCE [None]
  - CARDIAC ARREST [None]
  - TOXICITY TO VARIOUS AGENTS [None]
  - TREMOR [None]
  - CONFUSIONAL STATE [None]
  - RIGHT VENTRICULAR FAILURE [None]
  - UNRESPONSIVE TO STIMULI [None]
  - VENTRICULAR TACHYCARDIA [None]
